FAERS Safety Report 24986834 (Version 1)
Quarter: 2025Q1

REPORT INFORMATION
  Report Type: Spontaneous
  Country: CH (occurrence: CH)
  Receive Date: 20250219
  Receipt Date: 20250219
  Transmission Date: 20250408
  Serious: Yes (Other)
  Sender: NOVO NORDISK
  Company Number: CH-NOVOPROD-1369153

PATIENT
  Age: 28 Year
  Sex: Male

DRUGS (8)
  1. ALHEMO [Suspect]
     Active Substance: CONCIZUMAB-MTCI
     Dosage: 14 MG, QD
     Route: 058
  2. ALHEMO [Suspect]
     Active Substance: CONCIZUMAB-MTCI
     Dosage: 10 MG, QD
     Route: 058
  3. ALHEMO [Suspect]
     Active Substance: CONCIZUMAB-MTCI
     Dosage: 14 MG, QD
     Route: 058
  4. ALHEMO [Suspect]
     Active Substance: CONCIZUMAB-MTCI
     Indication: Factor IX deficiency
     Dosage: 70 MG, QD LOADING DOSE
     Route: 058
     Dates: start: 202312
  5. RIXUBIS [Concomitant]
     Active Substance: COAGULATION FACTOR IX RECOMBINANT HUMAN
  6. RIXUBIS [Concomitant]
     Active Substance: COAGULATION FACTOR IX RECOMBINANT HUMAN
  7. RIXUBIS [Concomitant]
     Active Substance: COAGULATION FACTOR IX RECOMBINANT HUMAN
     Indication: Factor IX inhibition
  8. RIXUBIS [Concomitant]
     Active Substance: COAGULATION FACTOR IX RECOMBINANT HUMAN
     Indication: Anti factor IX antibody increased
     Dosage: 3000 IU, BIW

REACTIONS (3)
  - Anti factor IX antibody increased [Unknown]
  - Condition aggravated [Unknown]
  - Haemarthrosis [Unknown]

NARRATIVE: CASE EVENT DATE: 20240501
